FAERS Safety Report 14022366 (Version 1)
Quarter: 2017Q3

REPORT INFORMATION
  Report Type: Spontaneous
  Country: FR (occurrence: FR)
  Receive Date: 20170928
  Receipt Date: 20170928
  Transmission Date: 20171128
  Serious: Yes (Hospitalization)
  Sender: FDA-Public Use
  Company Number: FR-ASTRAZENECA-2017SE97648

PATIENT
  Age: 25323 Day
  Sex: Male

DRUGS (7)
  1. KARDEGIC [Suspect]
     Active Substance: ASPIRIN LYSINE
     Indication: CORONARY ARTERY OCCLUSION
     Route: 048
     Dates: start: 20170908
  2. BISOCE [Concomitant]
     Active Substance: BISOPROLOL
  3. AGRASTAT [Suspect]
     Active Substance: TIROFIBAN HYDROCHLORIDE
     Indication: CARDIOVASCULAR EVENT PROPHYLAXIS
     Route: 042
     Dates: start: 20170909, end: 20170909
  4. BRILIQUE [Suspect]
     Active Substance: TICAGRELOR
     Indication: CORONARY ARTERY OCCLUSION
     Route: 048
     Dates: start: 20170908, end: 20170909
  5. BRILIQUE [Suspect]
     Active Substance: TICAGRELOR
     Indication: CORONARY ARTERY OCCLUSION
     Route: 048
  6. HEPARIN SODIUM. [Suspect]
     Active Substance: HEPARIN SODIUM
     Indication: CORONARY ARTERY OCCLUSION
     Route: 065
     Dates: start: 20170908, end: 20170909
  7. LASILIX [Concomitant]
     Active Substance: FUROSEMIDE

REACTIONS (1)
  - Thrombocytopenia [Recovering/Resolving]

NARRATIVE: CASE EVENT DATE: 20170909
